FAERS Safety Report 8954726 (Version 5)
Quarter: 2013Q1

REPORT INFORMATION
  Report Type: Report from Study
  Country: FR (occurrence: FR)
  Receive Date: 20121207
  Receipt Date: 20130122
  Transmission Date: 20140127
  Serious: Yes (Hospitalization)
  Sender: FDA-Public Use
  Company Number: FR-TEVA-360980USA

PATIENT
  Sex: Male
  Weight: 85 kg

DRUGS (7)
  1. TREANDA [Suspect]
     Indication: MANTLE CELL LYMPHOMA
     Route: 042
     Dates: start: 20120131
  2. VELCADE [Suspect]
     Indication: MANTLE CELL LYMPHOMA
     Dosage: 2.1 MILLIGRAM DAILY;
     Route: 058
     Dates: start: 20120131
  3. MABTHERA [Suspect]
     Indication: MANTLE CELL LYMPHOMA
     Dosage: 600 MILLIGRAM DAILY;
     Route: 041
     Dates: start: 20120131
  4. DEXAMETHASONE [Suspect]
     Indication: MANTLE CELL LYMPHOMA
     Dosage: 40 MILLIGRAM DAILY;
     Route: 048
     Dates: start: 20120201
  5. SPIRONOLACTONE [Concomitant]
     Indication: HYPERTENSION
     Route: 048
  6. PRAVASTATIN [Concomitant]
     Indication: DYSLIPIDAEMIA
     Dosage: 0.5
     Route: 048
  7. CLADRIBINE [Concomitant]

REACTIONS (3)
  - Visual impairment [Recovered/Resolved]
  - Anterior chamber inflammation [Recovered/Resolved]
  - Posterior segment of eye anomaly [Recovered/Resolved]
